FAERS Safety Report 8070982-8 (Version None)
Quarter: 2012Q1

REPORT INFORMATION
  Report Type: 
  Country: None (occurrence: None)
  Receive Date: 20120125
  Receipt Date: 20120120
  Transmission Date: 20120608
  Serious: Yes (Hospitalization)
  Sender: FDA-Public Use
  Company Number: FR-MERCK-1112FRA00057

PATIENT
  Age: 44 Year
  Sex: Male

DRUGS (12)
  1. TENOFOVIR DISOPROXIL FUMARATE [Concomitant]
     Route: 048
     Dates: start: 20111205, end: 20111207
  2. ABACAVIR SULFATE AND LAMIVUDINE [Concomitant]
     Route: 048
     Dates: start: 20111209
  3. TRIMETHOPRIM AND SULFAMETHOXAZOLE [Concomitant]
     Route: 048
     Dates: end: 20111127
  4. ISENTRESS [Suspect]
     Route: 048
     Dates: start: 20111205, end: 20111207
  5. ETRAVIRINE [Suspect]
     Route: 048
     Dates: start: 20111205, end: 20111207
  6. ISENTRESS [Suspect]
     Indication: HIV INFECTION
     Route: 048
     Dates: start: 20111115, end: 20111202
  7. ETRAVIRINE [Suspect]
     Indication: HIV INFECTION
     Route: 048
     Dates: start: 20111115, end: 20111202
  8. ABACAVIR SULFATE AND LAMIVUDINE [Concomitant]
     Route: 048
     Dates: start: 20111205, end: 20111207
  9. TENOFOVIR DISOPROXIL FUMARATE [Concomitant]
     Indication: HIV INFECTION
     Route: 048
     Dates: start: 20070101, end: 20111202
  10. ETRAVIRINE [Suspect]
     Route: 048
     Dates: start: 20111209
  11. TENOFOVIR DISOPROXIL FUMARATE [Concomitant]
     Route: 048
     Dates: start: 20111209
  12. ABACAVIR SULFATE AND LAMIVUDINE [Concomitant]
     Indication: HIV INFECTION
     Route: 048
     Dates: start: 20070101, end: 20111202

REACTIONS (3)
  - PRURITUS [None]
  - FEBRILE NEUTROPENIA [None]
  - RASH MACULO-PAPULAR [None]
